FAERS Safety Report 11116882 (Version 1)
Quarter: 2015Q2

REPORT INFORMATION
  Report Type: Spontaneous
  Country: AU (occurrence: AU)
  Receive Date: 20150515
  Receipt Date: 20150515
  Transmission Date: 20150821
  Serious: Yes (Death, Other)
  Sender: FDA-Public Use
  Company Number: AU-ABBVIE-15P-008-1390310-00

PATIENT
  Age: 2 Year

DRUGS (6)
  1. ATRACURIUM BESYLATE. [Suspect]
     Active Substance: ATRACURIUM BESYLATE
     Indication: DENTAL OPERATION
  2. NITROUS OXIDE. [Suspect]
     Active Substance: NITROUS OXIDE
     Indication: ANAESTHESIA
     Route: 065
  3. ATRACURIUM BESYLATE. [Suspect]
     Active Substance: ATRACURIUM BESYLATE
     Indication: ANAESTHESIA
     Route: 065
  4. SEVOFLURANE. [Suspect]
     Active Substance: SEVOFLURANE
     Indication: ANAESTHESIA
     Route: 065
  5. SEVOFLURANE. [Suspect]
     Active Substance: SEVOFLURANE
     Indication: DENTAL OPERATION
  6. NITROUS OXIDE. [Suspect]
     Active Substance: NITROUS OXIDE
     Indication: DENTAL OPERATION

REACTIONS (5)
  - Neurological decompensation [Fatal]
  - Coronary artery disease [Fatal]
  - Arrhythmia [Fatal]
  - Ventricular fibrillation [Fatal]
  - Bradycardia [Fatal]
